FAERS Safety Report 9323067 (Version 2)
Quarter: 2013Q3

REPORT INFORMATION
  Report Type: Report from Study
  Country: JP (occurrence: JP)
  Receive Date: 20130603
  Receipt Date: 20130709
  Transmission Date: 20140515
  Serious: Yes (Hospitalization)
  Sender: FDA-Public Use
  Company Number: PHHY2013JP026768

PATIENT
  Age: 85 Year
  Sex: Female
  Weight: 38 kg

DRUGS (4)
  1. EXELON [Suspect]
     Indication: DEMENTIA ALZHEIMER^S TYPE
     Dosage: 4.5 MG, DAILY
     Route: 062
     Dates: start: 20120703, end: 20120730
  2. EXELON [Suspect]
     Dosage: 9 MG, DAILY
     Route: 062
     Dates: start: 20120731, end: 20120827
  3. EXELON [Suspect]
     Dosage: 13.5 MG, DAILY
     Route: 062
     Dates: start: 20120828, end: 20120924
  4. EXELON [Suspect]
     Dosage: 18 MG, DAILY
     Route: 062
     Dates: start: 20120925

REACTIONS (10)
  - Contusion [Recovered/Resolved]
  - Decreased appetite [Recovering/Resolving]
  - Fall [Recovered/Resolved]
  - Platelet count increased [Unknown]
  - Schizophrenia [Not Recovered/Not Resolved]
  - Delusion [Unknown]
  - Gastric ulcer [Not Recovered/Not Resolved]
  - Weight decreased [Unknown]
  - Restlessness [Unknown]
  - Gait disturbance [Unknown]
